FAERS Safety Report 13384361 (Version 1)
Quarter: 2017Q1

REPORT INFORMATION
  Report Type: Spontaneous
  Country: JP (occurrence: JP)
  Receive Date: 20170329
  Receipt Date: 20170329
  Transmission Date: 20170429
  Serious: Yes (Hospitalization)
  Sender: FDA-Public Use
  Company Number: JP-MYLANLABS-2017M1018005

PATIENT

DRUGS (30)
  1. CARBOPLATIN. [Suspect]
     Active Substance: CARBOPLATIN
     Indication: UTERINE CANCER
     Dosage: AUC6(1H)
     Route: 065
  2. APREPITANT. [Concomitant]
     Active Substance: APREPITANT
     Indication: UTERINE CANCER
     Dosage: 125 MG, QD
     Route: 065
  3. DEXAMETHASONE. [Concomitant]
     Active Substance: DEXAMETHASONE
     Indication: OVARIAN CANCER STAGE II
  4. BROTIZOLAM [Concomitant]
     Active Substance: BROTIZOLAM
     Indication: PRODUCT USED FOR UNKNOWN INDICATION
     Dosage: 0.25 MG, QD
     Route: 065
  5. CITRATE [Concomitant]
     Active Substance: CITRIC ACID MONOHYDRATE
     Indication: PRODUCT USED FOR UNKNOWN INDICATION
     Dosage: 50 MG, BID
     Route: 065
  6. GRANISETRON [Concomitant]
     Active Substance: GRANISETRON
     Indication: UTERINE CANCER
     Dosage: 3 MG, QD
     Route: 065
  7. FUROSEMIDE. [Concomitant]
     Active Substance: FUROSEMIDE
     Indication: PRODUCT USED FOR UNKNOWN INDICATION
     Dosage: 20 MG, QD
     Route: 048
  8. PACLITAXEL. [Suspect]
     Active Substance: PACLITAXEL
     Indication: OVARIAN CANCER STAGE II
  9. DIPHENHYDRAMINE. [Concomitant]
     Active Substance: DIPHENHYDRAMINE
     Indication: OVARIAN CANCER STAGE II
  10. ALPRAZOLAM. [Concomitant]
     Active Substance: ALPRAZOLAM
     Indication: PRODUCT USED FOR UNKNOWN INDICATION
     Dosage: 0.4 MG, TID
     Route: 048
  11. AMLODIPINE [Concomitant]
     Active Substance: AMLODIPINE BESYLATE
     Indication: PRODUCT USED FOR UNKNOWN INDICATION
     Dosage: 5 MG, QD
     Route: 048
  12. RABEPRAZOLE [Concomitant]
     Active Substance: RABEPRAZOLE
     Indication: PRODUCT USED FOR UNKNOWN INDICATION
     Dosage: 10 MG, QD
     Route: 048
  13. PACLITAXEL. [Suspect]
     Active Substance: PACLITAXEL
     Indication: UTERINE CANCER
     Dosage: 80 MG/M2, QD
     Route: 065
  14. DIPHENHYDRAMINE. [Concomitant]
     Active Substance: DIPHENHYDRAMINE
     Indication: UTERINE CANCER
     Dosage: 50 MG, QD
     Route: 065
  15. LOXOPROFEN [Concomitant]
     Active Substance: LOXOPROFEN
     Indication: PAIN
     Dosage: 60 MG, PRN
     Route: 048
  16. DOMPERIDONE [Concomitant]
     Active Substance: DOMPERIDONE
     Indication: NAUSEA
     Dosage: 10 MG, PRN
     Route: 048
  17. RANITIDINE. [Interacting]
     Active Substance: RANITIDINE
     Indication: OVARIAN CANCER STAGE II
  18. SERTRALINE [Interacting]
     Active Substance: SERTRALINE HYDROCHLORIDE
     Indication: UTERINE CANCER
     Dosage: 25 MG, QD
     Route: 048
  19. SERTRALINE [Interacting]
     Active Substance: SERTRALINE HYDROCHLORIDE
     Indication: OVARIAN CANCER STAGE II
  20. APREPITANT. [Concomitant]
     Active Substance: APREPITANT
     Indication: OVARIAN CANCER STAGE II
     Dosage: 80 MG, QD
     Route: 065
  21. PALONOSETRON [Concomitant]
     Active Substance: PALONOSETRON
     Indication: OVARIAN CANCER STAGE II
  22. DEXAMETHASONE. [Concomitant]
     Active Substance: DEXAMETHASONE
     Indication: UTERINE CANCER
     Dosage: 6.6 MG, QD
     Route: 065
  23. RANITIDINE. [Interacting]
     Active Substance: RANITIDINE
     Indication: UTERINE CANCER
     Dosage: 50 MG, QD
     Route: 065
  24. GRANISETRON [Concomitant]
     Active Substance: GRANISETRON
     Indication: OVARIAN CANCER STAGE II
  25. VALSARTAN. [Concomitant]
     Active Substance: VALSARTAN
     Indication: PRODUCT USED FOR UNKNOWN INDICATION
     Dosage: 80 MG, BID
     Route: 065
  26. MAGNESIUM OXIDE. [Concomitant]
     Active Substance: MAGNESIUM OXIDE
     Indication: PRODUCT USED FOR UNKNOWN INDICATION
     Dosage: 330 MG, TID
     Route: 048
  27. PALONOSETRON [Concomitant]
     Active Substance: PALONOSETRON
     Indication: UTERINE CANCER
     Dosage: 0.75 MG, QD
     Route: 065
  28. OLOPATADINE [Concomitant]
     Active Substance: OLOPATADINE
     Indication: PRODUCT USED FOR UNKNOWN INDICATION
     Dosage: 10 MG, QD
     Route: 065
  29. CLOTIAZEPAM [Concomitant]
     Active Substance: CLOTIAZEPAM
     Indication: ANXIETY
     Dosage: 5 MG, PRN
     Route: 048
  30. CARBOPLATIN. [Suspect]
     Active Substance: CARBOPLATIN
     Indication: OVARIAN CANCER STAGE II

REACTIONS (5)
  - Hypoaesthesia [Unknown]
  - Cytopenia [Unknown]
  - Akathisia [Recovering/Resolving]
  - Renal impairment [Unknown]
  - Drug interaction [Unknown]
